FAERS Safety Report 10523206 (Version 1)
Quarter: 2014Q4

REPORT INFORMATION
  Report Type: Spontaneous
  Country: JP (occurrence: JP)
  Receive Date: 20141016
  Receipt Date: 20141016
  Transmission Date: 20150528
  Serious: Yes (Other)
  Sender: FDA-Public Use
  Company Number: JP-PFIZER INC-2014282452

PATIENT
  Age: 51 Year
  Sex: Male

DRUGS (1)
  1. SELARA [Suspect]
     Active Substance: EPLERENONE
     Dosage: 50 MG, DAILY
     Route: 048
     Dates: start: 201104, end: 201105

REACTIONS (1)
  - Blood creatine phosphokinase increased [Unknown]
